FAERS Safety Report 6001085-1 (Version None)
Quarter: 2008Q4

REPORT INFORMATION
  Report Type: 
  Country: None (occurrence: None)
  Receive Date: 20081215
  Receipt Date: 20071218
  Transmission Date: 20090506
  Serious: No
  Sender: FDA-Public Use
  Company Number: US-AMGEN-KDL245480

PATIENT
  Sex: Male

DRUGS (5)
  1. ENBREL [Suspect]
     Indication: PSORIASIS
     Route: 058
     Dates: start: 20060201
  2. SIMVASTATIN [Concomitant]
  3. FEXOFENADINE [Concomitant]
  4. HYDROCHLOROTHIAZIDE [Concomitant]
  5. ANALAPRIL [Concomitant]

REACTIONS (2)
  - HERPES ZOSTER [None]
  - THERAPEUTIC RESPONSE DECREASED [None]
